FAERS Safety Report 12299927 (Version 2)
Quarter: 2016Q3

REPORT INFORMATION
  Report Type: Report from Study
  Country: US (occurrence: US)
  Receive Date: 20160425
  Receipt Date: 20160812
  Transmission Date: 20161109
  Serious: Yes (Hospitalization, Other)
  Sender: FDA-Public Use
  Company Number: US-TEVA-654576USA

PATIENT
  Age: 52 Year
  Sex: Female

DRUGS (12)
  1. CHOLECALCIFEROL [Concomitant]
     Active Substance: CHOLECALCIFEROL
     Dosage: UNITS
     Route: 065
  2. BENZOTROPINE [Concomitant]
     Active Substance: BENZTROPINE
     Dosage: HOURS OF SLEEP (HS)/1.5
     Route: 065
  3. SENOKOT [Concomitant]
     Active Substance: SENNOSIDES
     Route: 065
  4. LEVOTHYROXINE. [Concomitant]
     Active Substance: LEVOTHYROXINE
     Route: 065
  5. CLOZAPINE. [Suspect]
     Active Substance: CLOZAPINE
     Route: 048
  6. COLACE [Concomitant]
     Active Substance: DOCUSATE SODIUM
     Dosage: 400 MILLIGRAM DAILY;
     Route: 065
  7. MIRALAX [Concomitant]
     Active Substance: POLYETHYLENE GLYCOL 3350
     Route: 065
  8. THORAZINE [Concomitant]
     Active Substance: CHLORPROMAZINE
     Dosage: 400 MILLIGRAM DAILY; P.O. (BY MOUTH), PRN (AS NEEDED) EVERY 6 HOURS
     Route: 048
  9. ESCALITH CR [Concomitant]
     Route: 065
  10. CLOZARIL [Suspect]
     Active Substance: CLOZAPINE
     Route: 065
  11. MILK OF MAGNESIA (MOM) [Concomitant]
     Route: 065
  12. SORBITOL. [Concomitant]
     Active Substance: SORBITOL
     Dosage: PRN (AS NEEDED)
     Route: 065

REACTIONS (1)
  - Granulocytopenia [Recovered/Resolved]

NARRATIVE: CASE EVENT DATE: 20160428
